FAERS Safety Report 6175199-X (Version None)
Quarter: 2009Q2

REPORT INFORMATION
  Report Type: 
  Country: None (occurrence: None)
  Receive Date: 20090430
  Receipt Date: 20081217
  Transmission Date: 20091009
  Serious: No
  Sender: FDA-Public Use
  Company Number: US-ASTRAZENECA-2008UW28239

PATIENT
  Sex: Female

DRUGS (10)
  1. NEXIUM [Suspect]
     Indication: GASTROINTESTINAL HAEMORRHAGE
     Route: 048
  2. THYROID MEDICATION [Concomitant]
  3. METOPROLOL TARTRATE [Concomitant]
  4. HYDROXYCHLOROQUINE SULFATE [Concomitant]
  5. PLAVIX [Concomitant]
  6. LASIX [Concomitant]
  7. ARTHRITIS TYLENOL [Concomitant]
  8. VYTORIN [Concomitant]
  9. NIACIN [Concomitant]
  10. CENTRUM [Concomitant]

REACTIONS (1)
  - HAEMATOCHEZIA [None]
